FAERS Safety Report 20163037 (Version 1)
Quarter: 2021Q4

REPORT INFORMATION
  Report Type: Spontaneous
  Country: US (occurrence: US)
  Receive Date: 20211209
  Receipt Date: 20211209
  Transmission Date: 20220303
  Serious: No
  Sender: FDA-Public Use
  Company Number: US-SA-SAC20211207000175

PATIENT
  Age: 78 Year
  Sex: Female

DRUGS (15)
  1. DUPIXENT [Suspect]
     Active Substance: DUPILUMAB
     Indication: Asthma
     Route: 058
     Dates: start: 202005
  2. ALBUTEROL [Concomitant]
     Active Substance: ALBUTEROL
  3. AMOXICILLIN [Concomitant]
     Active Substance: AMOXICILLIN
  4. AZITHROMYCIN [Concomitant]
     Active Substance: AZITHROMYCIN
  5. BUDESONIDE [Concomitant]
     Active Substance: BUDESONIDE
  6. CEFUROXIME [Concomitant]
     Active Substance: CEFUROXIME
  7. DOXYCYCLINE [Concomitant]
     Active Substance: DOXYCYCLINE
  8. FLUTICASONE [Concomitant]
     Active Substance: FLUTICASONE
  9. IPRATROPIUM [Concomitant]
     Active Substance: IPRATROPIUM
  10. LEVOFLOXACIN [Concomitant]
     Active Substance: LEVOFLOXACIN
  11. MONTELUKAST [Concomitant]
     Active Substance: MONTELUKAST SODIUM
  12. PREDNISONE [Concomitant]
     Active Substance: PREDNISONE
  13. VENTOLIN HFA [Concomitant]
     Active Substance: ALBUTEROL SULFATE
  14. HYDROCODONE [Concomitant]
     Active Substance: HYDROCODONE
  15. METHYLPREDNIS [Concomitant]

REACTIONS (1)
  - Product dose omission issue [Unknown]

NARRATIVE: CASE EVENT DATE: 20211130
